FAERS Safety Report 21938931 (Version 1)
Quarter: 2023Q1

REPORT INFORMATION
  Report Type: Report from Study
  Country: US (occurrence: US)
  Receive Date: 20230201
  Receipt Date: 20230201
  Transmission Date: 20230418
  Serious: Yes (Death, Hospitalization)
  Sender: FDA-Public Use
  Company Number: US-EXELIXIS-CABO-22052247

PATIENT
  Age: 64 Year
  Sex: Male
  Weight: 66.789 kg

DRUGS (1)
  1. CABOMETYX [Suspect]
     Active Substance: CABOZANTINIB S-MALATE
     Indication: Hepatocellular carcinoma
     Dosage: 60 MG, QD
     Route: 048
     Dates: start: 20220503

REACTIONS (8)
  - Internal haemorrhage [Unknown]
  - Death [Fatal]
  - Somnolence [Unknown]
  - Eating disorder [Unknown]
  - Fatigue [Unknown]
  - Nausea [Unknown]
  - Diarrhoea [Unknown]
  - Asthenia [Unknown]

NARRATIVE: CASE EVENT DATE: 20220501
